FAERS Safety Report 8586594-3 (Version None)
Quarter: 2012Q3

REPORT INFORMATION
  Report Type: 
  Country: None (occurrence: None)
  Receive Date: 20120810
  Receipt Date: 20120807
  Transmission Date: 20120928
  Serious: No
  Sender: FDA-Public Use
  Company Number: US-PFIZER INC-2012193544

PATIENT
  Age: 45 Year
  Sex: Female
  Weight: 52.154 kg

DRUGS (3)
  1. LYRICA [Suspect]
     Indication: POST HERPETIC NEURALGIA
     Dosage: 75 MG, 2X/DAY
     Dates: start: 20120701
  2. LYRICA [Suspect]
     Dosage: 75 MG, DAILY AT NIGHT
     Dates: start: 20120701
  3. LYRICA [Suspect]
     Dosage: 75 MG, EVERY OTHER DAY
     Dates: start: 20120101

REACTIONS (1)
  - FATIGUE [None]
